FAERS Safety Report 6424078-9 (Version None)
Quarter: 2009Q4

REPORT INFORMATION
  Report Type: 
  Country: None (occurrence: None)
  Receive Date: 20091102
  Receipt Date: 20091023
  Transmission Date: 20100525
  Serious: Yes (Other)
  Sender: FDA-Public Use
  Company Number: PHHY2009JP46520

PATIENT
  Age: 45 Year
  Sex: Male

DRUGS (3)
  1. SANDIMMUNE [Suspect]
     Indication: RENAL TRANSPLANT
     Route: 042
  2. NEORAL [Suspect]
     Indication: RENAL TRANSPLANT
     Route: 048
  3. MYCOPHENOLATE MOFETIL [Concomitant]
     Indication: RENAL TRANSPLANT

REACTIONS (3)
  - CHROMOSOME ANALYSIS ABNORMAL [None]
  - NEPHROPATHY TOXIC [None]
  - TRANSPLANT REJECTION [None]
